FAERS Safety Report 8616433-3 (Version None)
Quarter: 2012Q3

REPORT INFORMATION
  Report Type: 
  Country: None (occurrence: None)
  Receive Date: 20120823
  Receipt Date: 20120817
  Transmission Date: 20120928
  Serious: Yes (Hospitalization, Congenital Anomaly)
  Sender: FDA-Public Use
  Company Number: PHHY2012GB069700

PATIENT
  Sex: Male
  Weight: 2.36 kg

DRUGS (6)
  1. ATORVASTATIN [Suspect]
     Dosage: 40 MG, (MATERNAL DOSE)
     Route: 064
  2. FENOFIBRATE [Suspect]
     Dosage: 200 MG (MATERNAL DOSE)
     Route: 064
  3. INSULIN [Suspect]
     Dosage: 300 U, (MATERNAL DOSE)
     Route: 064
  4. BETAMETHASONE [Suspect]
     Dosage: 20 UG/HR (MATERNAL DOSE)
     Route: 064
  5. ACETYLSALICYLIC ACID SRT [Suspect]
     Dosage: 75 MG,(MATERNAL DOSE)
     Route: 064
  6. FOLIC ACID [Suspect]
     Dosage: 5 MG, (MATERNAL DOSE)
     Route: 064

REACTIONS (5)
  - BRAIN MALFORMATION [None]
  - CONVULSION [None]
  - PREMATURE BABY [None]
  - LOW BIRTH WEIGHT BABY [None]
  - FOETAL EXPOSURE DURING PREGNANCY [None]
